FAERS Safety Report 6389056-7 (Version None)
Quarter: 2009Q4

REPORT INFORMATION
  Report Type: 
  Country: None (occurrence: None)
  Receive Date: 20091005
  Receipt Date: 20090921
  Transmission Date: 20100525
  Serious: Yes (Death, Hospitalization)
  Sender: FDA-Public Use
  Company Number: MX-JNJCH-2007315897

PATIENT
  Age: 5 Year
  Sex: Female

DRUGS (2)
  1. ACETYLSALICYLIC ACID [Suspect]
     Dosage: TEXT:1/2 A 500 MG TABLET TWICE
     Route: 065
  2. DRUG, UNSPECIFIED [Suspect]
     Dosage: TEXT:UNSPECIFIED TWICE
     Route: 065

REACTIONS (7)
  - HEPATIC CONGESTION [None]
  - MYOCARDIAL INFARCTION [None]
  - MYOCARDITIS [None]
  - MYOPATHY [None]
  - RENAL TUBULAR NECROSIS [None]
  - THERAPEUTIC AGENT TOXICITY [None]
  - WRONG DRUG ADMINISTERED [None]
